FAERS Safety Report 5957675-5 (Version None)
Quarter: 2008Q4

REPORT INFORMATION
  Report Type: 
  Country: None (occurrence: None)
  Receive Date: 20081117
  Receipt Date: 20081104
  Transmission Date: 20090506
  Serious: Yes (Life-Threatening, Hospitalization)
  Sender: FDA-Public Use
  Company Number: 2008AL011742

PATIENT
  Age: 42 Year
  Sex: Female

DRUGS (6)
  1. SPIRONOLACTONE [Suspect]
     Indication: ALCOHOLIC LIVER DISEASE
     Dosage: 25 MG;PO
     Route: 048
     Dates: start: 20080922, end: 20080930
  2. OMEPRAZOLE [Concomitant]
  3. THIAMINE HCL [Concomitant]
  4. VITAMIN B COMPLEX CAP [Concomitant]
  5. CHLORPHENAMINE [Concomitant]
  6. PREDNISOLONE [Concomitant]

REACTIONS (1)
  - STEVENS-JOHNSON SYNDROME [None]
